FAERS Safety Report 7473934-1 (Version None)
Quarter: 2011Q2

REPORT INFORMATION
  Report Type: 
  Country: None (occurrence: None)
  Receive Date: 20110511
  Receipt Date: 20110427
  Transmission Date: 20111010
  Serious: Yes (Other)
  Sender: FDA-Public Use
  Company Number: FR-JNJFOC-20100706778

PATIENT
  Age: 31 Year
  Sex: Female
  Weight: 81 kg

DRUGS (4)
  1. NORDETTE-21 [Suspect]
     Indication: CONTRACEPTION
     Route: 048
  2. REMICADE [Suspect]
     Indication: PSORIASIS
     Route: 042
  3. RIFAMPIN AND ISONIAZID [Suspect]
     Indication: ANTIBIOTIC PROPHYLAXIS
     Route: 048
  4. REMICADE [Suspect]
     Route: 042

REACTIONS (2)
  - DRUG EXPOSURE BEFORE PREGNANCY [None]
  - PREGNANCY ON ORAL CONTRACEPTIVE [None]
